FAERS Safety Report 24447111 (Version 2)
Quarter: 2024Q4

REPORT INFORMATION
  Report Type: Spontaneous
  Country: CN (occurrence: CN)
  Receive Date: 20241016
  Receipt Date: 20241024
  Transmission Date: 20250114
  Serious: Yes (Other)
  Sender: NOVARTIS
  Company Number: CN-002147023-NVSC2024CN201514

PATIENT
  Age: 60 Year
  Sex: Female
  Weight: 50 kg

DRUGS (13)
  1. TEGRETOL [Suspect]
     Active Substance: CARBAMAZEPINE
     Indication: Epilepsy
     Dosage: 0.100 G, TID
     Route: 048
     Dates: start: 20240830, end: 20240918
  2. CELECOXIB [Suspect]
     Active Substance: CELECOXIB
     Indication: Brain contusion
     Dosage: 0.200 G, QD
     Route: 048
     Dates: start: 20240830, end: 20240918
  3. CELECOXIB [Suspect]
     Active Substance: CELECOXIB
     Indication: Subdural haematoma
  4. AMBROXOL HYDROCHLORIDE [Suspect]
     Active Substance: AMBROXOL HYDROCHLORIDE
     Indication: Bronchitis chronic
     Dosage: 15.000 MG, BID
     Route: 041
     Dates: start: 20240819, end: 20240918
  5. AMBROXOL HYDROCHLORIDE [Suspect]
     Active Substance: AMBROXOL HYDROCHLORIDE
     Indication: Emphysema
  6. POTASSIUM CHLORIDE [Concomitant]
     Active Substance: POTASSIUM CHLORIDE
     Indication: Fluid replacement
     Dosage: 10.000 ML, QD
     Route: 041
     Dates: start: 20240819, end: 20240918
  7. POTASSIUM CHLORIDE [Concomitant]
     Active Substance: POTASSIUM CHLORIDE
     Indication: Mineral supplementation
  8. POTASSIUM CHLORIDE [Concomitant]
     Active Substance: POTASSIUM CHLORIDE
     Indication: Mineral supplementation
     Dosage: 1.000 G, BID
     Route: 048
     Dates: start: 20240819, end: 20241011
  9. LOSARTAN POTASSIUM AND HYDROCHLOROTHIAZIDE [Concomitant]
     Active Substance: HYDROCHLOROTHIAZIDE\LOSARTAN POTASSIUM
     Indication: Hypertension
     Dosage: 1.000 DOSAGE FORM, QD
     Route: 048
     Dates: start: 20240819, end: 20241011
  10. HERBALS\DIAMMONIUM GLYCYRRHIZINATE [Concomitant]
     Active Substance: HERBALS\DIAMMONIUM GLYCYRRHIZINATE
     Indication: Hepatic function abnormal
     Dosage: 150.000 MG, TID (ENTERIC-COATED CAPSULE)
     Route: 048
     Dates: start: 20240821, end: 20240918
  11. CITICOLINE SODIUM [Concomitant]
     Active Substance: CITICOLINE SODIUM
     Indication: Brain contusion
     Dosage: 0.500 G, QD
     Route: 041
     Dates: start: 20240801, end: 20240901
  12. CITICOLINE SODIUM [Concomitant]
     Active Substance: CITICOLINE SODIUM
     Indication: Subdural haematoma
  13. AMLODIPINE BESYLATE [Concomitant]
     Active Substance: AMLODIPINE BESYLATE
     Indication: Hypertension
     Dosage: 5.000 MG, QD
     Route: 048
     Dates: start: 20240820, end: 20241011

REACTIONS (3)
  - Dermatitis allergic [Unknown]
  - Macule [Recovering/Resolving]
  - Pruritus [Recovering/Resolving]

NARRATIVE: CASE EVENT DATE: 20240918
